FAERS Safety Report 5882433-X (Version None)
Quarter: 2008Q3

REPORT INFORMATION
  Report Type: 
  Country: None (occurrence: None)
  Receive Date: 20080913
  Receipt Date: 20080804
  Transmission Date: 20090109
  Serious: No
  Sender: FDA-Public Use
  Company Number: US-ABBOTT-08P-163-0468915-00

PATIENT
  Sex: Female
  Weight: 90.8 kg

DRUGS (4)
  1. HUMIRA [Suspect]
     Indication: PSORIASIS
     Route: 058
     Dates: start: 20080101, end: 20080301
  2. HUMIRA [Suspect]
     Indication: PSORIATIC ARTHROPATHY
  3. MEFENAMIC ACID [Concomitant]
     Indication: PAIN
     Route: 048
  4. NABUMETONE [Concomitant]
     Indication: PAIN
     Route: 048
     Dates: start: 20080701

REACTIONS (3)
  - PAIN [None]
  - PNEUMONIA [None]
  - RASH VESICULAR [None]
